FAERS Safety Report 24956009 (Version 1)
Quarter: 2025Q1

REPORT INFORMATION
  Report Type: Spontaneous
  Country: US (occurrence: None)
  Receive Date: 20250211
  Receipt Date: 20250211
  Transmission Date: 20250408
  Serious: No
  Sender: FDA-CTU
  Company Number: None

PATIENT

DRUGS (1)
  1. DALFAMPRIDINE [Suspect]
     Active Substance: DALFAMPRIDINE

REACTIONS (12)
  - Flushing [None]
  - Asthenia [None]
  - Condition aggravated [None]
  - Temperature intolerance [None]
  - Speech disorder [None]
  - Monoplegia [None]
  - Agraphia [None]
  - Gait disturbance [None]
  - Speech disorder [None]
  - Pain in extremity [None]
  - Balance disorder [None]
  - Multiple sclerosis [None]
